FAERS Safety Report 10047148 (Version 1)
Quarter: 2014Q1

REPORT INFORMATION
  Report Type: Spontaneous
  Country: CH (occurrence: None)
  Receive Date: 20140327
  Receipt Date: 20140327
  Transmission Date: 20141002
  Serious: Yes (Death)
  Sender: FDA-Public Use
  Company Number: 20140153

PATIENT
  Sex: 0

DRUGS (4)
  1. VENOFER [Suspect]
     Indication: PRODUCT USED FOR UNKNOWN INDICATION
     Route: 064
     Dates: start: 20140114, end: 20140116
  2. CEFALEXIN [Concomitant]
  3. MULTIVITAMIN (ERGOCALCIFEROL) [Concomitant]
  4. IRON [Concomitant]

REACTIONS (2)
  - Foetal death [None]
  - Maternal drugs affecting foetus [None]
